FAERS Safety Report 5720250-1 (Version None)
Quarter: 2008Q2

REPORT INFORMATION
  Report Type: 
  Country: None (occurrence: None)
  Receive Date: 20080423
  Receipt Date: 20070730
  Transmission Date: 20081010
  Serious: Yes (Other)
  Sender: FDA-Public Use
  Company Number: 243424

PATIENT
  Age: 62 Year
  Sex: Female
  Weight: 68.9 kg

DRUGS (4)
  1. AVASTIN [Suspect]
     Indication: BREAST CANCER METASTATIC
     Dosage: 10 MG/KG, INTRAVENOUS
     Route: 042
     Dates: start: 20061124, end: 20070601
  2. DIOVAN [Concomitant]
  3. NORVASC [Concomitant]
  4. LESCOL [Concomitant]

REACTIONS (1)
  - NEPHROTIC SYNDROME [None]
